FAERS Safety Report 14491289 (Version 1)
Quarter: 2018Q1

REPORT INFORMATION
  Report Type: Spontaneous
  Country: IT (occurrence: IT)
  Receive Date: 20180206
  Receipt Date: 20180206
  Transmission Date: 20180509
  Serious: Yes (Other)
  Sender: FDA-Public Use
  Company Number: PHHY2018IT013933

PATIENT
  Age: 65 Year
  Sex: Male

DRUGS (1)
  1. GABAPENTIN. [Suspect]
     Active Substance: GABAPENTIN
     Indication: NEURALGIA
     Dosage: UNK
     Route: 065

REACTIONS (17)
  - Blood creatine phosphokinase MB increased [Recovering/Resolving]
  - Blood creatine phosphokinase increased [Recovering/Resolving]
  - Blood potassium increased [Recovering/Resolving]
  - Tenderness [Recovering/Resolving]
  - Hyporeflexia [Recovering/Resolving]
  - Muscle necrosis [Recovering/Resolving]
  - Tremor [Recovering/Resolving]
  - Asthenia [Recovered/Resolved]
  - Myoglobin urine present [Recovering/Resolving]
  - Troponin increased [Recovering/Resolving]
  - Myalgia [Recovering/Resolving]
  - Hypotension [Recovering/Resolving]
  - Brain natriuretic peptide increased [Recovering/Resolving]
  - Rhabdomyolysis [Recovering/Resolving]
  - Blood lactate dehydrogenase increased [Recovering/Resolving]
  - Muscular weakness [Recovering/Resolving]
  - Asthenia [Recovering/Resolving]
